FAERS Safety Report 9136832 (Version 1)
Quarter: 2013Q1

REPORT INFORMATION
  Report Type: Report from Study
  Country: US (occurrence: US)
  Receive Date: 20130304
  Receipt Date: 20130304
  Transmission Date: 20140127
  Serious: No
  Sender: FDA-Public Use
  Company Number: US-ABBOTT-12P-163-0926538-00

PATIENT
  Sex: Male
  Weight: 74.91 kg

DRUGS (4)
  1. ANDROGEL 1% [Suspect]
     Indication: BLOOD TESTOSTERONE DECREASED
     Route: 061
  2. ANDROGEL 1% [Suspect]
     Route: 061
  3. VICODIN [Concomitant]
     Indication: BACK INJURY
  4. CIALIS [Concomitant]
     Indication: PRODUCT USED FOR UNKNOWN INDICATION

REACTIONS (2)
  - Musculoskeletal stiffness [Recovered/Resolved]
  - Musculoskeletal stiffness [Recovered/Resolved]
